FAERS Safety Report 7730900-6 (Version None)
Quarter: 2011Q3

REPORT INFORMATION
  Report Type: 
  Country: None (occurrence: None)
  Receive Date: 20110906
  Receipt Date: 20110829
  Transmission Date: 20111222
  Serious: Yes (Other)
  Sender: FDA-Public Use
  Company Number: NO-CEPHALON-2011004570

PATIENT
  Age: 24 Year
  Sex: Male

DRUGS (1)
  1. MODAFANIL [Suspect]
     Indication: NARCOLEPSY
     Route: 048
     Dates: start: 20040101

REACTIONS (2)
  - DERMATITIS ALLERGIC [None]
  - FURUNCLE [None]
